FAERS Safety Report 17015982 (Version 2)
Quarter: 2020Q1

REPORT INFORMATION
  Report Type: Spontaneous
  Country: IT (occurrence: IT)
  Receive Date: 20191111
  Receipt Date: 20200313
  Transmission Date: 20200409
  Serious: Yes (Hospitalization)
  Sender: FDA-Public Use
  Company Number: IT-CLINIGEN GROUP PLC/ CLINIGEN HEALTHCARE LTD-IT-CLGN-19-0012859

PATIENT
  Age: 13 Year
  Sex: Female

DRUGS (2)
  1. ALDESLEUKIN [Suspect]
     Active Substance: ALDESLEUKIN
     Indication: NEUROBLASTOMA
     Route: 058
     Dates: start: 20190909, end: 20190910
  2. DINUTUXIMAB [Concomitant]
     Active Substance: DINUTUXIMAB
     Indication: NEUROBLASTOMA
     Route: 042
     Dates: start: 20190909, end: 20190918

REACTIONS (6)
  - Rash [Recovered/Resolved]
  - Hypotension [Recovered/Resolved]
  - Presyncope [Recovered/Resolved]
  - Hypersensitivity [Recovered/Resolved]
  - Oedema [Recovered/Resolved]
  - Off label use [Unknown]

NARRATIVE: CASE EVENT DATE: 20190910
